FAERS Safety Report 4829022-3 (Version None)
Quarter: 2005Q4

REPORT INFORMATION
  Report Type: 
  Country: None (occurrence: None)
  Receive Date: 20051027
  Receipt Date: 20050307
  Transmission Date: 20060501
  Serious: Yes (Other)
  Sender: FDA-Public Use
  Company Number: HQWYE057011MAR05

PATIENT
  Age: 61 Year
  Sex: Female
  Weight: 99.88 kg

DRUGS (11)
  1. PREMARIN [Suspect]
     Indication: HOT FLUSH
     Dosage: 0.625MG TABLET DAILY,
     Dates: start: 20050222, end: 20050303
  2. RELAFEN [Concomitant]
  3. SYNTHROID [Concomitant]
  4. ALLEGRA [Concomitant]
  5. ALBUTEROL [Concomitant]
  6. ASPIRIN [Concomitant]
  7. AXID [Concomitant]
  8. QUININE SULFATE [Concomitant]
  9. TOPROL-XL [Concomitant]
  10. LOTREL [Concomitant]
  11. LASIX [Concomitant]

REACTIONS (2)
  - PAIN [None]
  - PRURITUS [None]
